FAERS Safety Report 15595375 (Version 1)
Quarter: 2018Q4

REPORT INFORMATION
  Report Type: Spontaneous
  Country: AU (occurrence: AU)
  Receive Date: 20181107
  Receipt Date: 20181107
  Transmission Date: 20190205
  Serious: Yes (Other)
  Sender: FDA-Public Use
  Company Number: AU-B.I. PHARMACEUTICALS,INC./RIDGEFIELD-2018-BI-053427

PATIENT
  Sex: Male

DRUGS (1)
  1. CATAPRES [Suspect]
     Active Substance: CLONIDINE HYDROCHLORIDE
     Indication: PSYCHOMOTOR HYPERACTIVITY
     Route: 065

REACTIONS (4)
  - Cortisol increased [Unknown]
  - Blood prolactin increased [Unknown]
  - Brain neoplasm [Unknown]
  - Blood testosterone decreased [Unknown]
